FAERS Safety Report 8011993-8 (Version None)
Quarter: 2011Q4

REPORT INFORMATION
  Report Type: 
  Country: None (occurrence: None)
  Receive Date: 20111228
  Receipt Date: 20111215
  Transmission Date: 20120403
  Serious: Yes (Hospitalization, Other)
  Sender: FDA-Public Use
  Company Number: BR-GLAXOSMITHKLINE-B0748467A

PATIENT
  Sex: Male
  Weight: 67 kg

DRUGS (6)
  1. TARCEVA [Suspect]
     Indication: CHEMOTHERAPY
     Dosage: 150MG PER DAY
     Route: 048
  2. PROPAFENONE HCL [Suspect]
     Indication: ARRHYTHMIA
     Dosage: 300MG TWICE PER DAY
     Route: 048
     Dates: start: 20030101
  3. ALPRAZOLAM [Concomitant]
     Dosage: 2MG PER DAY
     Route: 065
  4. FOLIC ACID [Concomitant]
     Indication: ANAEMIA PROPHYLAXIS
     Dosage: 5MG PER DAY
     Route: 048
     Dates: start: 20090101
  5. DOMPERIDONE MALEATE [Concomitant]
     Indication: ILL-DEFINED DISORDER
     Route: 065
     Dates: start: 20110912
  6. ISONIAZID [Concomitant]
     Indication: ANTIBIOTIC PROPHYLAXIS
     Dosage: 100MG TWICE PER DAY
     Route: 048

REACTIONS (21)
  - LUNG NEOPLASM MALIGNANT [None]
  - HYPERSENSITIVITY [None]
  - BEDRIDDEN [None]
  - NERVOUSNESS [None]
  - PNEUMONIA [None]
  - LISTLESS [None]
  - OEDEMA MOUTH [None]
  - ALLERGIC OEDEMA [None]
  - EYE INJURY [None]
  - SNEEZING [None]
  - ASTHENIA [None]
  - ACTIVITIES OF DAILY LIVING IMPAIRED [None]
  - METASTASES TO LUNG [None]
  - LUNG NEOPLASM [None]
  - SKIN DISCOLOURATION [None]
  - EYE SWELLING [None]
  - DECREASED APPETITE [None]
  - SKIN EXFOLIATION [None]
  - COUGH [None]
  - WOUND [None]
  - DRY SKIN [None]
